FAERS Safety Report 9316715 (Version 1)
Quarter: 2013Q2

REPORT INFORMATION
  Report Type: Spontaneous
  Country: US (occurrence: US)
  Receive Date: 20130530
  Receipt Date: 20130530
  Transmission Date: 20140414
  Serious: No
  Sender: FDA-Public Use
  Company Number: US-BAYER-2013-066282

PATIENT
  Age: 47 Year
  Sex: Female
  Weight: 120 kg

DRUGS (5)
  1. BETASERON [Suspect]
     Dosage: 0.25 ML, QOD
  2. BETASERON [Suspect]
     Dosage: 0.5 ML, QOD
  3. BETASERON [Suspect]
     Dosage: 0.75 ML, QOD
  4. BETASERON [Suspect]
     Dosage: 1 ML, QOD
     Route: 058
  5. VITAMIN B12 [Concomitant]
     Dosage: 1000 ?G, UNK

REACTIONS (4)
  - Injection site pain [Unknown]
  - Injection site rash [Unknown]
  - Dizziness [Unknown]
  - Asthenia [Unknown]
